FAERS Safety Report 18375372 (Version 3)
Quarter: 2020Q4

REPORT INFORMATION
  Report Type: Report from Study
  Country: None (occurrence: NL)
  Receive Date: 20201012
  Receipt Date: 20201207
  Transmission Date: 20210114
  Serious: Yes (Death, Hospitalization)
  Sender: FDA-Public Use
  Company Number: NL-ABBVIE-20K-114-3602215-00

PATIENT
  Sex: Male
  Weight: 57 kg

DRUGS (42)
  1. DUODOPA [Suspect]
     Active Substance: CARBIDOPA\LEVODOPA
     Dosage: MD: 7.4 CD: 3.5 ED: 1.5?REMAINS AT 16 HOURS
     Route: 050
  2. CARBIDOPA LEVODOPA [Concomitant]
     Active Substance: CARBIDOPA\LEVODOPA
     Dosage: 200/50 MG
     Route: 048
     Dates: start: 20201017, end: 20201030
  3. SEROQUEL XR [Concomitant]
     Active Substance: QUETIAPINE FUMARATE
     Indication: PRODUCT USED FOR UNKNOWN INDICATION
     Dosage: SEROQUEL XR TABLET MVA
     Route: 048
     Dates: start: 20201013, end: 202010
  4. SEROQUEL XR [Concomitant]
     Active Substance: QUETIAPINE FUMARATE
     Dosage: SEROQUEL XR TABLET MVA
     Route: 048
     Dates: start: 20201018, end: 20201030
  5. MORPHINE [Concomitant]
     Active Substance: MORPHINE
     Indication: PRODUCT USED FOR UNKNOWN INDICATION
     Dosage: WHEN IT NEEDED 6 TIMES PER DAY 1 ML AMP, 10 MG/ML/ 1 ML AMP?MORPHINE INJVLST
     Dates: start: 20201030, end: 20201101
  6. MIDAZOLAM. [Concomitant]
     Active Substance: MIDAZOLAM
     Dosage: 5 MG/ML IN 1 ML AMP, OCCASIONALLY
     Route: 058
     Dates: start: 20201024
  7. DUODOPA [Suspect]
     Active Substance: CARBIDOPA\LEVODOPA
     Indication: PARKINSON^S DISEASE
     Dosage: MD: 8.7 CD: 3.9 ED: 1.5?REMAINS AT 16 HOURS
     Route: 050
     Dates: start: 20191104
  8. MADOPAR DISPERSIBLE [Concomitant]
     Indication: PARKINSON^S DISEASE
     Dosage: 2 TABLETS PER NIGHT IF NEEDED
  9. PROZAC [Concomitant]
     Active Substance: FLUOXETINE HYDROCHLORIDE
     Indication: DEPRESSION
     Route: 048
     Dates: start: 20200301
  10. CETOMACROGOL [Concomitant]
     Active Substance: COSMETICS
     Indication: PRODUCT USED FOR UNKNOWN INDICATION
     Dosage: CETOMACROGOL CREAM WITH VASELIN 10%,?WHEN IT NEEDED 1 PER DAY, 1 DOSE
     Route: 003
     Dates: start: 20201013, end: 202010
  11. FENTANYL. [Concomitant]
     Active Substance: FENTANYL
     Indication: PRODUCT USED FOR UNKNOWN INDICATION
     Dosage: 12 UG/H, FENTANYL PLASTER
     Route: 062
     Dates: start: 20201016, end: 20201101
  12. MIDAZOLAM. [Concomitant]
     Active Substance: MIDAZOLAM
     Indication: PRODUCT USED FOR UNKNOWN INDICATION
     Dosage: 5 MG/ML IN 1 ML AMP, WHEN NEEDED 0.5 ML 6 TIMES PER DAY; MIDAZOLAM IJVLST
     Route: 058
     Dates: start: 20201030, end: 20201101
  13. HYDROCORTISONE;OXYTETRACYCLINE;POLYMYXIN B [Concomitant]
     Indication: FIBROMA
     Dosage: 3.5 GRAMS, NOT FURTHER SPECIFIED
     Dates: start: 20201013, end: 202010
  14. HYDROCORTISONE;OXYTETRACYCLINE;POLYMYXIN B [Concomitant]
     Dosage: 3.5 GRAMS, NOT FURTHER SPECIFIED
     Dates: start: 20201017, end: 20201030
  15. DUODOPA [Suspect]
     Active Substance: CARBIDOPA\LEVODOPA
     Dosage: MD: 8.7 CD: 3.5 ED: 1.5?REMAINS AT 16 HOURS
     Route: 050
  16. SINEMET CR [Concomitant]
     Active Substance: CARBIDOPA\LEVODOPA
     Indication: PARKINSON^S DISEASE
     Dosage: 2 TABLETS AFTER DISCONNECTING PUMP
  17. OMEPRAZOL [Concomitant]
     Active Substance: OMEPRAZOLE
     Indication: PRODUCT USED FOR UNKNOWN INDICATION
     Route: 048
     Dates: start: 20201013, end: 202010
  18. COLECALCIFEROL [Concomitant]
     Active Substance: CHOLECALCIFEROL
     Indication: PRODUCT USED FOR UNKNOWN INDICATION
     Dosage: 5600 IE
     Dates: start: 20201013
  19. CARBIDOPA LEVODOPA [Concomitant]
     Active Substance: CARBIDOPA\LEVODOPA
     Indication: PRODUCT USED FOR UNKNOWN INDICATION
     Dosage: 200/50 MG
     Route: 048
     Dates: start: 20201013, end: 202010
  20. QUETIAPINE. [Concomitant]
     Active Substance: QUETIAPINE
     Indication: RESTLESSNESS
     Dosage: 3 TABLETS/DAY OR IF NEEDED 2 TIMES/DAY
     Route: 048
     Dates: start: 20201013, end: 202010
  21. QUETIAPINE. [Concomitant]
     Active Substance: QUETIAPINE
     Indication: HALLUCINATION
     Route: 048
     Dates: start: 20201028, end: 20201030
  22. FLUOXETINE [Concomitant]
     Active Substance: FLUOXETINE HYDROCHLORIDE
     Dosage: 2 TIMES PER DAY 0.5 PIECE
     Route: 048
     Dates: start: 20201017, end: 20201030
  23. HYDROCORTIZON [Concomitant]
     Dosage: 2 TO 3 TIMES PER DAY
     Dates: start: 20201017, end: 20201030
  24. OMEPRAZOL [Concomitant]
     Active Substance: OMEPRAZOLE
     Route: 048
     Dates: start: 20201017, end: 20201030
  25. MACROGOL [Concomitant]
     Active Substance: POLYETHYLENE GLYCOLS
     Indication: PRODUCT USED FOR UNKNOWN INDICATION
     Dosage: DRINK
     Route: 048
     Dates: start: 20201025, end: 20201029
  26. MIDAZOLAM. [Concomitant]
     Active Substance: MIDAZOLAM
     Dosage: 5 MG/ML IN 1 ML AMP, 1 PER DAY 5 MG, OCCASIONALLY
     Route: 058
     Dates: start: 20201021, end: 20201021
  27. DUODOPA [Suspect]
     Active Substance: CARBIDOPA\LEVODOPA
     Dosage: MD: 7.4 ML, CD: 3.3 ML/H
     Route: 050
     Dates: start: 20201013, end: 20201101
  28. CETOMACROGOL [Concomitant]
     Active Substance: COSMETICS
     Dosage: IF NEEDED 3 TIMES PER DAY ONE DOSE
     Route: 003
     Dates: start: 20201016, end: 20201102
  29. FLUOXETINE [Concomitant]
     Active Substance: FLUOXETINE HYDROCHLORIDE
     Indication: PRODUCT USED FOR UNKNOWN INDICATION
     Dosage: 2 TIMES 0.5 TABLET PER DAY
     Route: 048
     Dates: start: 20201016, end: 202010
  30. HYDROCORTIZON [Concomitant]
     Indication: PRODUCT USED FOR UNKNOWN INDICATION
     Dosage: EYE CREAM, 2 TO 3 TIMES PER DAY
     Dates: start: 20201013, end: 202010
  31. NATRIUM PHOSPHATE [Concomitant]
     Indication: PRODUCT USED FOR UNKNOWN INDICATION
     Dosage: OCCASIONALLY
     Route: 054
     Dates: start: 20201024, end: 20201024
  32. NATRIUM PHOSPHATE [Concomitant]
     Dosage: WHEN IT IS NEEDED 1 PER DAY
     Route: 054
     Dates: start: 20201025, end: 20201030
  33. DUODOPA [Suspect]
     Active Substance: CARBIDOPA\LEVODOPA
     Dosage: MD: 7.4 CD: 3.9 ED: 1.5?REMAINS AT 16 HOURS
     Route: 050
  34. PARACETAMOL [Concomitant]
     Active Substance: ACETAMINOPHEN
     Indication: STOMA SITE PAIN
     Route: 048
     Dates: start: 20201013, end: 202010
  35. NADROPARINE [Concomitant]
     Active Substance: NADROPARIN
     Indication: PRODUCT USED FOR UNKNOWN INDICATION
     Dosage: 2850 IE = 0.3 ML
     Route: 058
     Dates: start: 20201014
  36. LOCOID [Concomitant]
     Active Substance: HYDROCORTISONE BUTYRATE
     Indication: PRODUCT USED FOR UNKNOWN INDICATION
     Dosage: LOCOID SCALP LOTION, HYDROCORTIZON
     Route: 003
     Dates: start: 20201013
  37. BISACODYL. [Concomitant]
     Active Substance: BISACODYL
     Indication: PRODUCT USED FOR UNKNOWN INDICATION
     Dosage: BYSACODYL TABLET MSR
     Dates: start: 20201029, end: 20201030
  38. AMOXICILLIN CLAVULANATE [Concomitant]
     Active Substance: AMOXICILLIN\CLAVULANIC ACID
     Indication: PRODUCT USED FOR UNKNOWN INDICATION
     Dosage: 500/125 MG
     Route: 048
     Dates: start: 20201023, end: 20201030
  39. PARACETAMOL [Concomitant]
     Active Substance: ACETAMINOPHEN
     Route: 054
     Dates: start: 20201023, end: 20201030
  40. MOVICOLON [Concomitant]
     Active Substance: POLYETHYLENE GLYCOL 3350\POTASSIUM CHLORIDE\SODIUM BICARBONATE\SODIUM CHLORIDE
     Indication: PRODUCT USED FOR UNKNOWN INDICATION
  41. SOLIFENACINE [Concomitant]
     Active Substance: SOLIFENACIN
     Indication: PRODUCT USED FOR UNKNOWN INDICATION
     Route: 048
     Dates: start: 20201013
  42. SODIUM PHOSPHATE [Concomitant]
     Active Substance: SODIUM PHOSPHATE
     Indication: PRODUCT USED FOR UNKNOWN INDICATION

REACTIONS (20)
  - Fall [Fatal]
  - Hip fracture [Recovering/Resolving]
  - Ileus [Recovered/Resolved]
  - Muscle rigidity [Unknown]
  - Agitation [Recovering/Resolving]
  - Fatigue [Unknown]
  - Freezing phenomenon [Unknown]
  - Head injury [Fatal]
  - Subdural haematoma [Fatal]
  - General physical health deterioration [Unknown]
  - On and off phenomenon [Unknown]
  - Nocturia [Unknown]
  - Discomfort [Unknown]
  - Weight increased [Unknown]
  - Dyskinesia [Recovering/Resolving]
  - Brain contusion [Fatal]
  - Inguinal hernia [Recovered/Resolved]
  - Gait disturbance [Unknown]
  - Fall [Recovered/Resolved]
  - Stoma site discharge [Unknown]

NARRATIVE: CASE EVENT DATE: 2020
